FAERS Safety Report 25926818 (Version 1)
Quarter: 2025Q4

REPORT INFORMATION
  Report Type: Spontaneous
  Country: GB (occurrence: None)
  Receive Date: 20251015
  Receipt Date: 20251015
  Transmission Date: 20260118
  Serious: Yes (Disabling)
  Sender: FDA-CTU
  Company Number: None

PATIENT
  Age: 18 Year
  Sex: Male
  Weight: 79 kg

DRUGS (1)
  1. CITALOPRAM [Suspect]
     Active Substance: CITALOPRAM
     Indication: Anxiety
     Dosage: ORAL
     Route: 048
     Dates: start: 20190613, end: 20191213

REACTIONS (11)
  - Sexual dysfunction [None]
  - Emotional disorder [None]
  - Anhedonia [None]
  - Nervous system disorder [None]
  - Autonomic nervous system imbalance [None]
  - Cardiovascular disorder [None]
  - Gastrointestinal disorder [None]
  - Tinnitus [None]
  - Cardiac disorder [None]
  - Paraesthesia [None]
  - Skin burning sensation [None]

NARRATIVE: CASE EVENT DATE: 20190613
